FAERS Safety Report 6128539-1 (Version None)
Quarter: 2009Q1

REPORT INFORMATION
  Report Type: 
  Country: None (occurrence: None)
  Receive Date: 20090319
  Receipt Date: 20090203
  Transmission Date: 20090719
  Serious: Yes (Death)
  Sender: FDA-Public Use
  Company Number: DSA_33176_2009

PATIENT
  Sex: Male

DRUGS (10)
  1. LORAZEPAM [Suspect]
     Indication: DRUG USE FOR UNKNOWN INDICATION
     Dosage: (4 MG QD  ORAL), (1.5 MG QD ORAL), (2 MG QD ORAL), (3 MG QD  ORAL)
     Route: 048
     Dates: start: 20080622, end: 20080701
  2. LORAZEPAM [Suspect]
     Indication: DRUG USE FOR UNKNOWN INDICATION
     Dosage: (4 MG QD  ORAL), (1.5 MG QD ORAL), (2 MG QD ORAL), (3 MG QD  ORAL)
     Route: 048
     Dates: start: 20080702, end: 20080706
  3. LORAZEPAM [Suspect]
     Indication: DRUG USE FOR UNKNOWN INDICATION
     Dosage: (4 MG QD  ORAL), (1.5 MG QD ORAL), (2 MG QD ORAL), (3 MG QD  ORAL)
     Route: 048
     Dates: start: 20080707, end: 20080727
  4. LORAZEPAM [Suspect]
     Indication: DRUG USE FOR UNKNOWN INDICATION
     Dosage: (4 MG QD  ORAL), (1.5 MG QD ORAL), (2 MG QD ORAL), (3 MG QD  ORAL)
     Route: 048
     Dates: start: 20080728, end: 20080731
  5. DALMADORM [Concomitant]
  6. AKINETON [Concomitant]
  7. HALDOL [Concomitant]
  8. ABILIFY [Concomitant]
  9. METFORMIN HCL [Concomitant]
  10. GLIMEPIRIDE [Concomitant]

REACTIONS (8)
  - ALANINE AMINOTRANSFERASE INCREASED [None]
  - ASPHYXIA [None]
  - COMPLETED SUICIDE [None]
  - CONDITION AGGRAVATED [None]
  - MEAN CELL VOLUME ABNORMAL [None]
  - RED BLOOD CELL COUNT DECREASED [None]
  - TYPE 2 DIABETES MELLITUS [None]
  - WHITE BLOOD CELL COUNT INCREASED [None]
